FAERS Safety Report 4397671-5 (Version None)
Quarter: 2004Q3

REPORT INFORMATION
  Report Type: 
  Country: None (occurrence: None)
  Receive Date: 20040712
  Receipt Date: 20040628
  Transmission Date: 20050211
  Serious: No
  Sender: FDA-Public Use
  Company Number: RENA-10840

PATIENT
  Age: 42 Year
  Sex: Female

DRUGS (27)
  1. RENAGEL [Suspect]
     Indication: HYPERPHOSPHATAEMIA
  2. RENAGEL [Suspect]
     Indication: HYPERPHOSPHATAEMIA
     Dosage: 0.4 G TID PO
     Route: 048
     Dates: start: 20030701, end: 20031001
  3. RENAGEL [Suspect]
     Indication: HYPERPHOSPHATAEMIA
     Dosage: 0.8 G TID PO
     Route: 048
     Dates: start: 20031001
  4. CELECOXIB [Concomitant]
  5. DOCUSATE [Concomitant]
  6. OMEPRAZOLE [Concomitant]
  7. SIMVASTATIN [Concomitant]
  8. GABAPENTIN [Concomitant]
  9. LEVOTHYROXINE SODIUM [Concomitant]
  10. GEMFIBROZIL [Concomitant]
  11. CAPSAICIN [Concomitant]
  12. CALCIUM CARBONATE [Concomitant]
  13. CITALOPRAM [Concomitant]
  14. SULFASALAZINE [Concomitant]
  15. I-ALPHA [Concomitant]
  16. IRON DEXTRON [Concomitant]
  17. EPOETIN ALPHA [Concomitant]
  18. RECOMBIVAX HB [Concomitant]
  19. QUININE [Concomitant]
  20. HYDROXYZINE [Concomitant]
  21. SULFONAMIDES [Concomitant]
  22. LACTULOSE [Concomitant]
  23. DIMENHYDRINATE [Concomitant]
  24. LORAZEPAM [Concomitant]
  25. ACETAMINOPHEN [Concomitant]
  26. SODIUM POLYSTYRENE SULFONATE [Concomitant]
  27. ACETAMINOPHEN OXYCODONE HYDROCHLORIDE [Concomitant]

REACTIONS (3)
  - BALANCE DISORDER [None]
  - FALL [None]
  - PARATHYROIDECTOMY [None]
